FAERS Safety Report 7863533-1 (Version None)
Quarter: 2011Q4

REPORT INFORMATION
  Report Type: 
  Country: None (occurrence: None)
  Receive Date: 20111027
  Receipt Date: 20101206
  Transmission Date: 20120403
  Serious: No
  Sender: FDA-Public Use
  Company Number: US-AMGEN-USASP2010007873

PATIENT
  Age: 57 Year
  Sex: Female
  Weight: 83.447 kg

DRUGS (2)
  1. ENBREL [Suspect]
     Indication: PSORIASIS
     Dosage: 50 MG, Q2WK
  2. CIPROFLOXACIN HYDROCHLORIDE [Suspect]
     Dosage: 500 MG, UNK

REACTIONS (1)
  - KIDNEY INFECTION [None]
